FAERS Safety Report 9411743 (Version 1)
Quarter: 2013Q3

REPORT INFORMATION
  Report Type: Spontaneous
  Country: US (occurrence: None)
  Receive Date: 20130719
  Receipt Date: 20130719
  Transmission Date: 20140515
  Serious: Yes (Other)
  Sender: FDA-Public Use
  Company Number: None

PATIENT
  Age: 86 None
  Sex: Male
  Weight: 86.18 kg

DRUGS (1)
  1. FEXOFENADINE [Suspect]
     Indication: SEASONAL ALLERGY
     Route: 048
     Dates: start: 20130708, end: 20130708

REACTIONS (6)
  - Drug ineffective [None]
  - Cough [None]
  - Sneezing [None]
  - Product substitution issue [None]
  - Product quality issue [None]
  - Product counterfeit [None]
